FAERS Safety Report 18588404 (Version 1)
Quarter: 2020Q4

REPORT INFORMATION
  Report Type: Spontaneous
  Country: US (occurrence: US)
  Receive Date: 20201207
  Receipt Date: 20201207
  Transmission Date: 20210114
  Serious: No
  Sender: FDA-Public Use
  Company Number: US-SIGMAPHARM LABORATORIES, LLC-2020SIG00017

PATIENT
  Age: 47 Year
  Sex: Female
  Weight: 99.77 kg

DRUGS (3)
  1. LIOTHYRONINE SODIUM. [Suspect]
     Active Substance: LIOTHYRONINE SODIUM
     Dosage: 25 ?G, 1X/DAY AT NIGHT
     Route: 048
  2. LIOTHYRONINE SODIUM. [Suspect]
     Active Substance: LIOTHYRONINE SODIUM
     Indication: HYPOTHYROIDISM
     Dosage: 50 ?G, 2X/DAY; A.M. AND P.M.
     Route: 048
  3. LIOTHYRONINE SODIUM. [Suspect]
     Active Substance: LIOTHYRONINE SODIUM
     Indication: HYPOTHYROIDISM
     Dosage: LOWER DOSE
     Route: 048

REACTIONS (5)
  - Plantar fasciitis [Not Recovered/Not Resolved]
  - Reaction to excipient [Not Recovered/Not Resolved]
  - Therapeutic response decreased [Not Recovered/Not Resolved]
  - Illness [Unknown]
  - Rash [Recovering/Resolving]

NARRATIVE: CASE EVENT DATE: 201908
